FAERS Safety Report 20895309 (Version 1)
Quarter: 2022Q2

REPORT INFORMATION
  Report Type: Spontaneous
  Country: US (occurrence: None)
  Receive Date: 20220528
  Receipt Date: 20220528
  Transmission Date: 20220721
  Serious: Yes (unspecified)
  Sender: FDA-Public Use
  Company Number: None

PATIENT
  Age: 55 Year
  Sex: Female
  Weight: 93.15 kg

DRUGS (11)
  1. CIMZIA [Suspect]
     Active Substance: CERTOLIZUMAB PEGOL
     Indication: Rheumatoid arthritis
     Dosage: OTHER FREQUENCY : LOADING DOSE;?
     Route: 058
     Dates: start: 20220527, end: 20220527
  2. WARFARIN [Concomitant]
     Active Substance: WARFARIN
  3. METOPROLOL [Concomitant]
     Active Substance: METOPROLOL
  4. OLMESARTAN [Concomitant]
     Active Substance: OLMESARTAN
  5. TROSPIUM [Concomitant]
     Active Substance: TROSPIUM
  6. PREGABALIN [Concomitant]
     Active Substance: PREGABALIN
  7. CYCLOBENZAPRINE [Concomitant]
     Active Substance: CYCLOBENZAPRINE
  8. RAYOS [Concomitant]
     Active Substance: PREDNISONE
  9. VENLAFAXINE [Concomitant]
     Active Substance: VENLAFAXINE HYDROCHLORIDE
  10. QUERCETIN [Concomitant]
     Active Substance: QUERCETIN
  11. VITAMINS [Concomitant]
     Active Substance: VITAMINS

REACTIONS (2)
  - Hypersensitivity [None]
  - Injection site urticaria [None]

NARRATIVE: CASE EVENT DATE: 20220527
